FAERS Safety Report 7674016-6 (Version None)
Quarter: 2011Q3

REPORT INFORMATION
  Report Type: 
  Country: None (occurrence: None)
  Receive Date: 20110810
  Receipt Date: 20110803
  Transmission Date: 20111222
  Serious: Yes (Other)
  Sender: FDA-Public Use
  Company Number: GB-BRISTOL-MYERS SQUIBB COMPANY-15947179

PATIENT
  Age: 54 Year
  Sex: Female
  Weight: 66 kg

DRUGS (7)
  1. WARFARIN SODIUM [Suspect]
     Indication: ATRIAL FIBRILLATION
     Route: 048
     Dates: start: 20100101
  2. AZULFIDINE [Concomitant]
     Route: 048
     Dates: start: 20101101
  3. ENBREL [Interacting]
     Indication: RHEUMATOID ARTHRITIS
     Dosage: 07MAR11 4TH DOSE
     Route: 058
     Dates: start: 20110208, end: 20110430
  4. ATENOLOL [Concomitant]
     Route: 048
  5. HYDROXYCHLOROQUINE [Concomitant]
     Indication: CARDIOVERSION
     Dates: start: 20110201
  6. DILTIAZEM HCL [Concomitant]
     Route: 048
  7. ASPIRIN [Concomitant]

REACTIONS (4)
  - DRUG INTERACTION [None]
  - ASTHENIA [None]
  - INTERNATIONAL NORMALISED RATIO INCREASED [None]
  - RHEUMATOID ARTHRITIS [None]
